FAERS Safety Report 7786726-0 (Version None)
Quarter: 2011Q3

REPORT INFORMATION
  Report Type: 
  Country: None (occurrence: None)
  Receive Date: 20110929
  Receipt Date: 20110926
  Transmission Date: 20111222
  Serious: Yes (Death, Other)
  Sender: FDA-Public Use
  Company Number: US-PFIZER INC-2011228779

PATIENT
  Sex: Male

DRUGS (4)
  1. NEURONTIN [Suspect]
     Indication: PAIN IN EXTREMITY
     Dosage: UNK
  2. TRILEPTAL [Suspect]
     Indication: CONVULSION
     Dosage: UNK
  3. LORTAB [Suspect]
     Indication: PAIN IN EXTREMITY
     Dosage: UNK
  4. MORPHINE SULFATE [Suspect]
     Dosage: 100MG/5ML, UNK

REACTIONS (2)
  - COMPLETED SUICIDE [None]
  - GUN SHOT WOUND [None]
